FAERS Safety Report 20855148 (Version 7)
Quarter: 2023Q2

REPORT INFORMATION
  Report Type: Spontaneous
  Country: US (occurrence: US)
  Receive Date: 20220520
  Receipt Date: 20230405
  Transmission Date: 20230722
  Serious: Yes (Other)
  Sender: FDA-Public Use
  Company Number: US-PFIZER INC-202200730871

PATIENT
  Age: 82 Year
  Sex: Female

DRUGS (3)
  1. IBRANCE [Suspect]
     Active Substance: PALBOCICLIB
     Indication: Breast cancer metastatic
     Dosage: 125 MG
  2. IBRANCE [Suspect]
     Active Substance: PALBOCICLIB
     Dosage: UNK
     Dates: start: 20230108
  3. FULVESTRANT [Concomitant]
     Active Substance: FULVESTRANT
     Dosage: UNK

REACTIONS (20)
  - Hypothyroidism [Unknown]
  - Leukopenia [Unknown]
  - Second primary malignancy [Unknown]
  - Ovarian neoplasm [Unknown]
  - Hypothalamo-pituitary disorder [Unknown]
  - Full blood count abnormal [Unknown]
  - Confusional state [Unknown]
  - Dysphagia [Unknown]
  - Anaemia [Unknown]
  - Blood creatinine increased [Unknown]
  - Gastrooesophageal reflux disease [Unknown]
  - Osteopenia [Unknown]
  - Neoplasm progression [Unknown]
  - Ovarian cyst [Unknown]
  - Chest wall mass [Unknown]
  - Inflammation [Unknown]
  - Hepatic lesion [Unknown]
  - Hepatic cyst [Unknown]
  - Pulmonary mass [Unknown]
  - Pleural disorder [Unknown]

NARRATIVE: CASE EVENT DATE: 20211207
